FAERS Safety Report 11408995 (Version 1)
Quarter: 2015Q3

REPORT INFORMATION
  Report Type: Report from Study
  Country: US (occurrence: US)
  Receive Date: 20150824
  Receipt Date: 20150824
  Transmission Date: 20151125
  Serious: Yes (Other)
  Sender: FDA-Public Use
  Company Number: US-AMGEN-USASL2015084147

PATIENT
  Age: 48 Year
  Sex: Male

DRUGS (1)
  1. ENBREL [Suspect]
     Active Substance: ETANERCEPT
     Indication: ANKYLOSING SPONDYLITIS
     Dosage: UNK
     Route: 065

REACTIONS (12)
  - Knee arthroplasty [Unknown]
  - Hypoaesthesia [Unknown]
  - Joint ankylosis [Unknown]
  - Surgery [Unknown]
  - Intervertebral disc space narrowing [Unknown]
  - Injury [Unknown]
  - Inflammatory marker increased [Unknown]
  - Hospitalisation [Unknown]
  - Knee operation [Unknown]
  - Sciatic nerve injury [Unknown]
  - Unevaluable event [Unknown]
  - Upper extremity mass [Unknown]
